FAERS Safety Report 18585144 (Version 1)
Quarter: 2020Q4

REPORT INFORMATION
  Report Type: Spontaneous
  Country: US (occurrence: US)
  Receive Date: 20201207
  Receipt Date: 20201207
  Transmission Date: 20210114
  Serious: No
  Sender: FDA-Public Use
  Company Number: US-GW PHARMA-202012USGW04216

PATIENT

DRUGS (1)
  1. EPIDIOLEX [Suspect]
     Active Substance: CANNABIDIOL
     Indication: EPILEPSY
     Dosage: 400 MILLIGRAM, BID (Q12H)
     Route: 048
     Dates: start: 20200513

REACTIONS (2)
  - Haemorrhoids [Unknown]
  - Faeces soft [Unknown]

NARRATIVE: CASE EVENT DATE: 2020
